FAERS Safety Report 10158541 (Version 1)
Quarter: 2014Q2

REPORT INFORMATION
  Report Type: Spontaneous
  Country: CN (occurrence: CN)
  Receive Date: 20140507
  Receipt Date: 20140507
  Transmission Date: 20141212
  Serious: Yes (Death, Other)
  Sender: FDA-Public Use
  Company Number: PHHY2014CN054812

PATIENT
  Sex: Male

DRUGS (4)
  1. CICLOSPORIN [Suspect]
     Indication: GRAFT VERSUS HOST DISEASE
  2. METHYLPREDNISOLONE [Suspect]
     Indication: GRAFT VERSUS HOST DISEASE
  3. BUSULFAN [Concomitant]
     Dosage: 3.5 MG/KG, QD
     Route: 042
  4. CYCLOPHOSPHAMIDE [Concomitant]
     Dosage: 50 MG/KG, PER DOSE
     Route: 042

REACTIONS (7)
  - Respiratory failure [Fatal]
  - Gastrointestinal haemorrhage [Unknown]
  - Graft versus host disease [Unknown]
  - Cytomegalovirus infection [Unknown]
  - Sepsis [Unknown]
  - Respiratory tract infection [Unknown]
  - Diarrhoea [Unknown]
